FAERS Safety Report 5798220-7 (Version None)
Quarter: 2008Q3

REPORT INFORMATION
  Report Type: 
  Country: None (occurrence: None)
  Receive Date: 20080702
  Receipt Date: 20080626
  Transmission Date: 20090109
  Serious: Yes (Death)
  Sender: FDA-Public Use
  Company Number: B0527029A

PATIENT
  Age: 69 Year
  Sex: Male

DRUGS (2)
  1. AMOXICILLIN TRIHYDRATE [Suspect]
     Indication: URINARY TRACT INFECTION
     Route: 065
     Dates: start: 20080520
  2. CIPROFLOXACIN HCL [Suspect]
     Indication: URINARY TRACT INFECTION
     Route: 065
     Dates: start: 20080519, end: 20080520

REACTIONS (3)
  - EPILEPSY [None]
  - NEUROLOGICAL SYMPTOM [None]
  - STATUS EPILEPTICUS [None]
